FAERS Safety Report 7988986 (Version 2)
Quarter: 2018Q4

REPORT INFORMATION
  Report Type: Report from Study
  Country: JP (occurrence: JP)
  Receive Date: 20110613
  Receipt Date: 20181102
  Transmission Date: 20190205
  Serious: Yes (Death)
  Sender: FDA-Public Use
  Company Number: PHHY2008JP16313

PATIENT
  Age: 61 Year
  Sex: Female
  Weight: 50 kg

DRUGS (7)
  1. NAVELBINE [Concomitant]
     Active Substance: VINORELBINE TARTRATE
     Indication: BREAST CANCER
     Dosage: 25 MG, UNK
     Route: 042
     Dates: start: 20060926, end: 20070326
  2. DECADRON [Concomitant]
     Active Substance: DEXAMETHASONE
     Indication: BREAST CANCER
     Dosage: 8 MG, UNK
     Route: 042
     Dates: start: 20060926, end: 20070326
  3. ZOMETA [Suspect]
     Active Substance: ZOLEDRONIC ACID
     Indication: PRODUCT USED FOR UNKNOWN INDICATION
     Dosage: 4 MG, EVERY 4 WEEKS
     Route: 042
     Dates: start: 20060926, end: 20070319
  4. AROMASIN [Concomitant]
     Active Substance: EXEMESTANE
     Indication: PRODUCT USED FOR UNKNOWN INDICATION
     Dosage: UNK
     Route: 048
     Dates: start: 20041215, end: 20060914
  5. FEMARA [Suspect]
     Active Substance: LETROZOLE
     Indication: BREAST CANCER
     Dosage: 2.5 MG, QD
     Route: 048
     Dates: start: 20060922, end: 20070530
  6. SEROTONE [Concomitant]
     Active Substance: AZASETRON HYDROCHLORIDE
     Indication: BREAST CANCER
     Dosage: 10 MG, UNK
     Route: 042
     Dates: start: 20060926, end: 20070326
  7. LOXONIN [Concomitant]
     Active Substance: LOXOPROFEN SODIUM
     Indication: BREAST CANCER
     Dosage: 180 MG, UNK
     Route: 048
     Dates: start: 20060921, end: 20070530

REACTIONS (4)
  - Concomitant disease aggravated [Fatal]
  - Pleural effusion [Fatal]
  - Malignant pleural effusion [Fatal]
  - Respiratory failure [Fatal]

NARRATIVE: CASE EVENT DATE: 20070314
